FAERS Safety Report 8563204-2 (Version None)
Quarter: 2012Q3

REPORT INFORMATION
  Report Type: 
  Country: None (occurrence: None)
  Receive Date: 20120802
  Receipt Date: 20120726
  Transmission Date: 20120928
  Serious: No
  Sender: FDA-Public Use
  Company Number: US-AMGEN-USASP2012037751

PATIENT
  Age: 67 Year
  Sex: Female

DRUGS (5)
  1. PLAQUENIL [Concomitant]
     Indication: RHEUMATOID ARTHRITIS
     Dosage: 200 MG, BID
     Route: 048
  2. ENBREL [Suspect]
     Indication: RHEUMATOID ARTHRITIS
     Dosage: 50 MG, QWK
     Dates: start: 20120522, end: 20120716
  3. METHOTREXATE [Concomitant]
     Indication: RHEUMATOID ARTHRITIS
     Dosage: 17.5 G, QWK
     Route: 048
  4. FOLIC ACID [Concomitant]
     Indication: RHEUMATOID ARTHRITIS
     Dosage: 1 G, QD
     Route: 048
  5. FOSAMAX [Concomitant]
     Indication: OSTEOPOROSIS
     Dosage: 7 G, QWK
     Route: 048

REACTIONS (6)
  - INJECTION SITE ERYTHEMA [None]
  - INJECTION SITE WARMTH [None]
  - INJECTION SITE REACTION [None]
  - INJECTION SITE PRURITUS [None]
  - INJECTION SITE MASS [None]
  - INJECTION SITE PAIN [None]
